FAERS Safety Report 8091989-0 (Version None)
Quarter: 2012Q1

REPORT INFORMATION
  Report Type: 
  Country: None (occurrence: None)
  Receive Date: 20120129
  Receipt Date: 20111129
  Transmission Date: 20120608
  Serious: No
  Sender: FDA-Public Use
  Company Number: US-ABBOTT-11P-163-0868565-00

PATIENT
  Sex: Male

DRUGS (9)
  1. CIPROFLOXACIN [Concomitant]
     Indication: CROHN'S DISEASE
     Dates: start: 20090101
  2. ROWASA [Concomitant]
     Indication: CROHN'S DISEASE
     Dosage: PRN
  3. ASACOL [Concomitant]
     Indication: CROHN'S DISEASE
     Dosage: HD DAILY
  4. HUMIRA [Suspect]
     Indication: CROHN'S DISEASE
     Dates: start: 20110916
  5. ONDANSETRON HCL [Concomitant]
     Indication: NAUSEA
     Dosage: 1-2 TABLETS PRN
  6. ACETAMINOPHEN [Concomitant]
     Indication: PAIN
     Dosage: 1-2 TABLETS PRN
  7. URSODIOL [Concomitant]
     Indication: CHOLANGITIS SCLEROSING
     Dates: start: 20100101
  8. URSODIOL [Concomitant]
     Indication: LIVER DISORDER
  9. ONDANSETRON HCL [Concomitant]
     Indication: MIGRAINE

REACTIONS (13)
  - INJECTION SITE DISCOMFORT [None]
  - OEDEMA PERIPHERAL [None]
  - RASH ERYTHEMATOUS [None]
  - MUSCLE SPASMS [None]
  - CHILLS [None]
  - INFLUENZA LIKE ILLNESS [None]
  - OFF LABEL USE [None]
  - RASH PRURITIC [None]
  - ECZEMA [None]
  - PYREXIA [None]
  - INJECTION SITE PAIN [None]
  - OROPHARYNGEAL PAIN [None]
  - MYALGIA [None]
